FAERS Safety Report 5089701-2 (Version None)
Quarter: 2006Q3

REPORT INFORMATION
  Report Type: 
  Country: None (occurrence: None)
  Receive Date: 20060817
  Receipt Date: 20060402
  Transmission Date: 20061208
  Serious: Yes (Other)
  Sender: FDA-Public Use
  Company Number: 200512007BBE

PATIENT
  Sex: Female

DRUGS (16)
  1. HYPRHO-D [Suspect]
  2. IMMUNE GLOBULIN (HUMAN) [Suspect]
  3. IMMUNE GLOBULIN (HUMAN) [Suspect]
  4. IMMUNE GLOBULIN (HUMAN) [Suspect]
  5. IMMUNE GLOBULIN (HUMAN) [Suspect]
  6. IMMUNE GLOBULIN (HUMAN) [Suspect]
  7. IMMUNE GLOBULIN (HUMAN) [Suspect]
  8. IMMUNE GLOBULIN (HUMAN) [Suspect]
  9. IMMUNE GLOBULIN (HUMAN) [Suspect]
  10. IMMUNE GLOBULIN (HUMAN) [Suspect]
  11. IMMUNE GLOBULIN (HUMAN) [Suspect]
  12. IMMUNE GLOBULIN (HUMAN) [Suspect]
  13. IMMUNE GLOBULIN (HUMAN) [Suspect]
  14. IMMUNE GLOBULIN (HUMAN) [Suspect]
  15. IMMUNE GLOBULIN (HUMAN) [Suspect]
  16. IMMUNE GLOBULIN (HUMAN) [Suspect]

REACTIONS (1)
  - METAL POISONING [None]
